FAERS Safety Report 9455540 (Version 2)
Quarter: 2013Q3

REPORT INFORMATION
  Report Type: Spontaneous
  Country: US (occurrence: US)
  Receive Date: 20130813
  Receipt Date: 20130918
  Transmission Date: 20140515
  Serious: No
  Sender: FDA-Public Use
  Company Number: US-PFIZER INC-2013233140

PATIENT
  Age: 64 Year
  Sex: Male
  Weight: 163 kg

DRUGS (9)
  1. PROVERA [Suspect]
     Indication: SOMNOLENCE
     Dosage: 200MG DAILY
     Route: 048
  2. ACETAZOLAMIDE [Concomitant]
     Dosage: 250 MG, UNK
  3. FUROSEMIDE [Concomitant]
     Dosage: 40 MG, UNK
  4. BENICAR [Concomitant]
     Dosage: 40 MG, UNK
  5. AMITRIPTYLINE HYDROCHLORIDE [Concomitant]
     Dosage: 10 MG, UNK
  6. PRAVASTATIN SODIUM [Concomitant]
     Dosage: 40 MG, UNK
  7. GEMFIBROZIL [Concomitant]
     Dosage: 600 MG, UNK
  8. LANTUS [Concomitant]
     Dosage: 100 IU, UNK
  9. OXYGEN [Concomitant]
     Indication: SLEEP APNOEA SYNDROME
     Dosage: UNK, 1X/DAY AT NIGHT

REACTIONS (2)
  - Somnolence [Unknown]
  - Intentional drug misuse [Unknown]
